FAERS Safety Report 19204628 (Version 2)
Quarter: 2021Q2

REPORT INFORMATION
  Report Type: Report from Study
  Country: US (occurrence: US)
  Receive Date: 20210503
  Receipt Date: 20210518
  Transmission Date: 20210717
  Serious: Yes (Hospitalization, Other)
  Sender: FDA-Public Use
  Company Number: US-BIOVITRUM-2021US3351

PATIENT
  Sex: Female

DRUGS (21)
  1. FIORICET [Concomitant]
     Active Substance: ACETAMINOPHEN\BUTALBITAL\CAFFEINE
  2. PREDNISONE. [Suspect]
     Active Substance: PREDNISONE
     Indication: IMMUNE THROMBOCYTOPENIA
  3. PENLAC [Concomitant]
     Active Substance: CICLOPIROX
  4. BUPRENORPHINE PATCH [Concomitant]
     Active Substance: BUPRENORPHINE
  5. HYDROCODONE BITARTRATE AND ACETAMINOPHEN [Concomitant]
     Active Substance: ACETAMINOPHEN\HYDROCODONE BITARTRATE
  6. KINERET [Suspect]
     Active Substance: ANAKINRA
     Indication: RHEUMATOID ARTHRITIS
     Route: 058
     Dates: start: 20210325
  7. PROTONIX [Concomitant]
     Active Substance: PANTOPRAZOLE SODIUM
  8. CRESTOR [Concomitant]
     Active Substance: ROSUVASTATIN CALCIUM
  9. GABAPENTIN. [Concomitant]
     Active Substance: GABAPENTIN
  10. LORAZEPAM. [Concomitant]
     Active Substance: LORAZEPAM
  11. ESTRADIOL. [Concomitant]
     Active Substance: ESTRADIOL
  12. VOLTAREN [Concomitant]
     Active Substance: DICLOFENAC SODIUM
  13. FLUOCINAMIDE [Concomitant]
  14. CARVEDILOL. [Concomitant]
     Active Substance: CARVEDILOL
  15. NORTRIPTYLINE [Concomitant]
     Active Substance: NORTRIPTYLINE
  16. LOSARTAN. [Concomitant]
     Active Substance: LOSARTAN
  17. AMLODIPINE [Concomitant]
     Active Substance: AMLODIPINE BESYLATE
  18. ACYCLOVIR. [Concomitant]
     Active Substance: ACYCLOVIR
  19. RHINOCORT [Concomitant]
     Active Substance: BUDESONIDE
  20. ZOFRAN [Concomitant]
     Active Substance: ONDANSETRON HYDROCHLORIDE
  21. MYRBETRIQ [Concomitant]
     Active Substance: MIRABEGRON

REACTIONS (4)
  - Product dose omission issue [Unknown]
  - Pneumonia [Unknown]
  - Injection site pain [Unknown]
  - Injection site bruising [Unknown]
